FAERS Safety Report 10993624 (Version 1)
Quarter: 2015Q2

REPORT INFORMATION
  Report Type: Spontaneous
  Country: FR (occurrence: FR)
  Receive Date: 20150407
  Receipt Date: 20150407
  Transmission Date: 20150821
  Serious: Yes (Other)
  Sender: FDA-Public Use
  Company Number: FR-TEVA-552933ISR

PATIENT
  Age: 64 Year
  Sex: Male

DRUGS (4)
  1. PHENYLEPHRINE [Concomitant]
     Active Substance: PHENYLEPHRINE\PHENYLEPHRINE HYDROCHLORIDE
     Route: 065
  2. TETRACAINE [Concomitant]
     Active Substance: TETRACAINE\TETRACAINE HYDROCHLORIDE
     Indication: ANAESTHESIA PROCEDURE
     Route: 065
  3. CEFUROXIME. [Suspect]
     Active Substance: CEFUROXIME
     Dosage: 0.1 ML OF 10 MG/ML SOLUTION
  4. TROPICAMIDE. [Concomitant]
     Active Substance: TROPICAMIDE
     Route: 065

REACTIONS (4)
  - Retinal detachment [Recovered/Resolved]
  - Blindness unilateral [Recovered/Resolved]
  - Retinal toxicity [Recovered/Resolved]
  - Retinal cyst [Recovered/Resolved]
